FAERS Safety Report 19012371 (Version 5)
Quarter: 2021Q2

REPORT INFORMATION
  Report Type: Report from Study
  Country: CO (occurrence: CO)
  Receive Date: 20210316
  Receipt Date: 20210505
  Transmission Date: 20210717
  Serious: Yes (Hospitalization, Other)
  Sender: FDA-Public Use
  Company Number: CO-ASTELLAS-2021US009263

PATIENT
  Age: 50 Year
  Sex: Female

DRUGS (12)
  1. TACROLIMUS. [Suspect]
     Active Substance: TACROLIMUS
     Indication: RENAL TRANSPLANT
     Dosage: 7 MG (1 CAPSULE OF 5 MG AND 2 CAPSULES OF 1 MG)
     Route: 048
     Dates: start: 20110202
  2. TACROLIMUS. [Suspect]
     Active Substance: TACROLIMUS
     Dosage: 9 MG (1 CAPSULE OF 5MG AND 4 CAPSULES OF 1 MG), ONCE DAILY
     Route: 048
     Dates: start: 20210202, end: 20210426
  3. TACROLIMUS. [Suspect]
     Active Substance: TACROLIMUS
     Dosage: 10 MG (2 CAPSULES OF 5 MG), ONCE DAILY
     Route: 048
     Dates: start: 20210427
  4. ENALAPRIL [Concomitant]
     Active Substance: ENALAPRIL
     Indication: HYPERTENSION
     Route: 065
  5. MYCOPHENOLATE [Concomitant]
     Active Substance: MYCOPHENOLIC ACID
     Indication: PRODUCT USED FOR UNKNOWN INDICATION
     Route: 065
  6. LEVOTHYROXINE. [Concomitant]
     Active Substance: LEVOTHYROXINE
     Indication: PRODUCT USED FOR UNKNOWN INDICATION
     Route: 065
  7. PREGABALIN. [Concomitant]
     Active Substance: PREGABALIN
     Indication: ANXIETY DISORDER
     Dosage: 75 MG AND 100 MG, UNKNOWN FREQ.
     Route: 065
  8. PREDNISOLONE. [Concomitant]
     Active Substance: PREDNISOLONE
     Indication: PRODUCT USED FOR UNKNOWN INDICATION
     Route: 065
  9. ESOMEPRAZOLE. [Concomitant]
     Active Substance: ESOMEPRAZOLE MAGNESIUM
     Indication: PRODUCT USED FOR UNKNOWN INDICATION
     Dosage: UNK UNK, UNKNOWN FREQ.
     Route: 065
  10. CLONAZEPAM. [Concomitant]
     Active Substance: CLONAZEPAM
     Indication: PRODUCT USED FOR UNKNOWN INDICATION
     Dosage: 6 DROPS AT 8 AM, 6 DROPS AT 2 PM AND 12 DROPS AT NIGHT CLOZAPINE AT NIGHT, UNKNOWN FREQ.
     Route: 065
  11. FUROSEMIDE. [Suspect]
     Active Substance: FUROSEMIDE
     Indication: PRODUCT USED FOR UNKNOWN INDICATION
     Dosage: UNK UNK, ONCE DAILY (EVERY 24 HOURS)
     Route: 065
  12. NIFEDIPINE. [Concomitant]
     Active Substance: NIFEDIPINE
     Indication: PRODUCT USED FOR UNKNOWN INDICATION
     Route: 065

REACTIONS (18)
  - Inflammation [Recovered/Resolved]
  - Blood sodium decreased [Recovered/Resolved]
  - Fatigue [Recovering/Resolving]
  - Kidney transplant rejection [Not Recovered/Not Resolved]
  - Syncope [Recovering/Resolving]
  - Immunosuppressant drug level decreased [Not Recovered/Not Resolved]
  - Accident [Unknown]
  - Headache [Recovering/Resolving]
  - Loss of consciousness [Recovering/Resolving]
  - Weight increased [Not Recovered/Not Resolved]
  - Peripheral swelling [Recovering/Resolving]
  - Anxiety [Not Recovered/Not Resolved]
  - Asthenia [Unknown]
  - Proteinuria [Not Recovered/Not Resolved]
  - Contusion [Recovering/Resolving]
  - Muscle spasms [Unknown]
  - Inflammation [Recovering/Resolving]
  - Fall [Unknown]

NARRATIVE: CASE EVENT DATE: 2016
